FAERS Safety Report 9905372 (Version 1)
Quarter: 2014Q1

REPORT INFORMATION
  Report Type: Spontaneous
  Country: US (occurrence: None)
  Receive Date: 20140218
  Receipt Date: 20140218
  Transmission Date: 20141002
  Serious: Yes (Life-Threatening)
  Sender: FDA-Public Use
  Company Number: None

PATIENT
  Sex: Female

DRUGS (1)
  1. OXYTOCIN [Suspect]
     Dates: start: 20140201, end: 20140202

REACTIONS (3)
  - Haemorrhage [None]
  - Wrong technique in drug usage process [None]
  - Incorrect product storage [None]
